FAERS Safety Report 6359111-6 (Version None)
Quarter: 2009Q3

REPORT INFORMATION
  Report Type: 
  Country: None (occurrence: None)
  Receive Date: 20090917
  Receipt Date: 20070530
  Transmission Date: 20100115
  Serious: Yes (Other)
  Sender: FDA-Public Use
  Company Number: US-ASTRAZENECA-2006UW25514

PATIENT
  Age: 51 Year
  Sex: Female
  Weight: 113.4 kg

DRUGS (14)
  1. SEROQUEL [Suspect]
     Dosage: 75-600 MG
     Route: 048
     Dates: start: 20011128
  2. WELLBUTRIN XL [Concomitant]
     Dosage: 300 MG
     Dates: start: 20060308
  3. LAMICTAL [Concomitant]
     Dates: start: 20060308
  4. ABILIFY [Concomitant]
     Dates: start: 20060308
  5. KLONOPIN [Concomitant]
     Dates: start: 20060308
  6. VALIUM [Concomitant]
     Dates: start: 20011129
  7. LEXAPRO [Concomitant]
     Dates: start: 20040122
  8. GLUCOPHAGE [Concomitant]
     Dates: start: 20011129
  9. PREMARIN [Concomitant]
     Dates: start: 20011129
  10. NEURONTIN [Concomitant]
     Dates: start: 20011129
  11. PAXIL [Concomitant]
     Dates: start: 20011129
  12. TOPAMAX [Concomitant]
     Dates: start: 20011213
  13. DIOVAN [Concomitant]
     Dates: start: 20011213
  14. SKELAXIN [Concomitant]
     Dosage: 400 MG 2 TABLETS THREE TIMES A DAY
     Dates: start: 20011213

REACTIONS (3)
  - DIABETES MELLITUS [None]
  - DIABETIC NEUROPATHY [None]
  - INSULIN RESISTANT DIABETES [None]
